FAERS Safety Report 8079243-4 (Version None)
Quarter: 2012Q1

REPORT INFORMATION
  Report Type: 
  Country: None (occurrence: None)
  Receive Date: 20120128
  Receipt Date: 20110815
  Transmission Date: 20120608
  Serious: No
  Sender: FDA-Public Use
  Company Number: US-ABBOTT-11P-163-0847469-00

PATIENT
  Age: 54 Year
  Sex: Female

DRUGS (6)
  1. HUMIRA [Suspect]
     Dates: start: 20110813
  2. HUMIRA [Suspect]
     Indication: RHEUMATOID ARTHRITIS
     Dates: start: 20110719
  3. OPANA [Concomitant]
     Indication: PAIN
  4. VALIUM [Concomitant]
     Indication: ANXIETY
  5. RANITIDINE [Concomitant]
     Indication: DYSPEPSIA
  6. GABAPENTIN [Concomitant]
     Indication: NEURALGIA

REACTIONS (6)
  - ERYTHEMA [None]
  - INJECTION SITE NODULE [None]
  - CARDIAC FLUTTER [None]
  - BLISTER [None]
  - DYSPNOEA [None]
  - HEART RATE IRREGULAR [None]
